FAERS Safety Report 14896446 (Version 7)
Quarter: 2020Q4

REPORT INFORMATION
  Report Type: Spontaneous
  Country: CA (occurrence: CA)
  Receive Date: 20180515
  Receipt Date: 20201127
  Transmission Date: 20210113
  Serious: Yes (Death, Other)
  Sender: FDA-Public Use
  Company Number: CA-PFIZER INC-2018196279

PATIENT
  Age: 72 Year
  Sex: Male
  Weight: 68 kg

DRUGS (31)
  1. SERTRALINE HCL [Suspect]
     Active Substance: SERTRALINE HYDROCHLORIDE
     Dosage: 5 MILLIGRAM
     Route: 065
  2. DABIGATRAN ETEXILATE MESILATE [Suspect]
     Active Substance: DABIGATRAN ETEXILATE MESYLATE
     Dosage: UNK
     Route: 065
  3. COUMADIN [Concomitant]
     Active Substance: WARFARIN SODIUM
     Dosage: UNK
     Route: 065
  4. IRBESARTAN. [Concomitant]
     Active Substance: IRBESARTAN
     Dosage: 75 MILLIGRAM, QD
     Route: 065
  5. WARFARIN [Concomitant]
     Active Substance: WARFARIN
     Dosage: UNK
     Route: 065
  6. ESBRIET [Suspect]
     Active Substance: PIRFENIDONE
     Dosage: 801 MG, TID
     Route: 048
     Dates: start: 2017, end: 2017
  7. ESBRIET [Suspect]
     Active Substance: PIRFENIDONE
     Indication: IDIOPATHIC PULMONARY FIBROSIS
     Dosage: UNK UNK, QD
     Route: 048
  8. ESBRIET [Suspect]
     Active Substance: PIRFENIDONE
     Dosage: 5 DF
     Route: 048
  9. ESBRIET [Suspect]
     Active Substance: PIRFENIDONE
     Dosage: 4 DF
     Route: 065
  10. LASIX [Concomitant]
     Active Substance: FUROSEMIDE
     Dosage: UNK
     Route: 065
  11. WARFARIN [Concomitant]
     Active Substance: WARFARIN
     Dosage: UNK
     Route: 065
  12. ZANTAC [Concomitant]
     Active Substance: RANITIDINE HYDROCHLORIDE
     Dosage: UNK
     Route: 065
  13. PANTOPRAZOLE [Suspect]
     Active Substance: PANTOPRAZOLE
     Dosage: 40 MG, QD
     Route: 065
     Dates: end: 2017
  14. ESBRIET [Suspect]
     Active Substance: PIRFENIDONE
     Dosage: 267 MILLIGRAM, QD
     Route: 048
  15. AVAPRO [Concomitant]
     Active Substance: IRBESARTAN
     Dosage: 75 MILLIGRAM, QD
     Route: 065
  16. IRBESARTAN. [Concomitant]
     Active Substance: IRBESARTAN
     Dosage: UNK
     Route: 065
  17. ESBRIET [Suspect]
     Active Substance: PIRFENIDONE
     Dosage: 267 MG, TID
     Route: 048
     Dates: start: 2017
  18. ESBRIET [Suspect]
     Active Substance: PIRFENIDONE
     Dosage: 534 MILLIGRAM, TID
     Route: 048
  19. RABEPRAZOLE [Suspect]
     Active Substance: RABEPRAZOLE
     Dosage: 20 MILLIGRAM, QD (DAILY)
     Route: 065
  20. ACETYLSALICYLIC ACID [Concomitant]
     Active Substance: ASPIRIN
     Dosage: UNK
     Route: 065
  21. BISOPROLOL [Concomitant]
     Active Substance: BISOPROLOL
     Dosage: UNK
     Route: 065
  22. ESBRIET [Suspect]
     Active Substance: PIRFENIDONE
     Indication: IDIOPATHIC PULMONARY FIBROSIS
     Dosage: 267 MILLIGRAM, QD
     Route: 048
  23. TECTA [Concomitant]
     Active Substance: PANTOPRAZOLE MAGNESIUM
     Dosage: 40 MILLIGRAM
     Route: 065
  24. ESBRIET [Suspect]
     Active Substance: PIRFENIDONE
     Dosage: 801 MG, TID
     Route: 048
     Dates: start: 2017
  25. ESBRIET [Suspect]
     Active Substance: PIRFENIDONE
     Dosage: 2403 MG, QD (DAILY)
     Route: 048
  26. ESBRIET [Suspect]
     Active Substance: PIRFENIDONE
     Dosage: 1602 MG, QD
     Route: 048
     Dates: start: 2017
  27. ESBRIET [Suspect]
     Active Substance: PIRFENIDONE
     Dosage: 267 MG, QD
     Route: 048
     Dates: end: 2017
  28. ESBRIET [Suspect]
     Active Substance: PIRFENIDONE
     Dosage: 8 DF
     Route: 048
  29. ESBRIET [Suspect]
     Active Substance: PIRFENIDONE
     Dosage: UNK
     Route: 048
  30. ESBRIET [Suspect]
     Active Substance: PIRFENIDONE
     Dosage: UNK MG
     Route: 048
  31. LIPITOR [Concomitant]
     Active Substance: ATORVASTATIN CALCIUM
     Dosage: UNK
     Route: 065

REACTIONS (34)
  - Muscle strain [Fatal]
  - Rash [Fatal]
  - Dysgeusia [Fatal]
  - Dizziness [Fatal]
  - Haemochromatosis [Fatal]
  - Gastrointestinal motility disorder [Fatal]
  - Gastrooesophageal reflux disease [Fatal]
  - Sneezing [Fatal]
  - Decreased appetite [Fatal]
  - Headache [Fatal]
  - Fatigue [Fatal]
  - Diarrhoea [Fatal]
  - Heart rate increased [Fatal]
  - Pruritus [Fatal]
  - Weight decreased [Fatal]
  - Death [Fatal]
  - Asthenia [Fatal]
  - Dyspnoea exertional [Fatal]
  - Abdominal pain upper [Fatal]
  - Oesophageal pain [Fatal]
  - Anxiety [Fatal]
  - Nausea [Fatal]
  - Taste disorder [Not Recovered/Not Resolved]
  - Pneumonia [Fatal]
  - Anorectal discomfort [Fatal]
  - Deafness [Fatal]
  - Rectal haemorrhage [Fatal]
  - Rhinorrhoea [Fatal]
  - Abdominal pain [Fatal]
  - Blood pressure increased [Fatal]
  - Ear discomfort [Fatal]
  - Constipation [Fatal]
  - Flatulence [Fatal]
  - Abdominal discomfort [Fatal]

NARRATIVE: CASE EVENT DATE: 2017
